FAERS Safety Report 6983180-3 (Version None)
Quarter: 2010Q3

REPORT INFORMATION
  Report Type: 
  Country: None (occurrence: None)
  Receive Date: 20100914
  Receipt Date: 20100628
  Transmission Date: 20110219
  Serious: Yes (Other)
  Sender: FDA-Public Use
  Company Number: US-PFIZER INC-2010080853

PATIENT
  Sex: Female
  Weight: 58.05 kg

DRUGS (13)
  1. LYRICA [Suspect]
     Indication: FIBROMYALGIA
     Dosage: 150 MG, 2X/DAY
     Route: 048
  2. PLAVIX [Concomitant]
     Indication: CARDIAC DISORDER
     Dosage: 75 MG, 1X/DAY
     Route: 048
  3. PLAVIX [Concomitant]
     Indication: THROMBOSIS
  4. DIOVAN HCT [Concomitant]
     Indication: HYPERTENSION
     Dosage: 160/25
     Route: 048
  5. WARFARIN SODIUM [Concomitant]
     Dosage: 2.5 MG, AS NEEDED
     Route: 048
  6. POTASSIUM [Concomitant]
     Indication: MINERAL SUPPLEMENTATION
  7. FUROSEMIDE [Concomitant]
     Indication: BLOOD POTASSIUM DECREASED
     Dosage: UNK
  8. SOTALOL HYDROCHLORIDE [Concomitant]
     Dosage: 80 MG, 2X/DAY
  9. COMBIVENT [Concomitant]
     Dosage: 2 PUFFS FOUR TIMES DAILY
  10. BUDESONIDE [Concomitant]
     Indication: LUNG DISORDER
     Dosage: 360 UG PUFFS,  3X/DAY
  11. ACIPHEX [Concomitant]
     Indication: DYSPEPSIA
     Dosage: 20 MG, 2X/DAY
     Route: 048
  12. ZOLPIDEM TARTRATE [Concomitant]
     Indication: INSOMNIA
     Dosage: 10 MG, UNK
     Route: 048
  13. IBANDRONATE SODIUM [Concomitant]
     Indication: OSTEOPOROSIS
     Dosage: 150 MG, MONTHLY
     Route: 048

REACTIONS (5)
  - BALANCE DISORDER [None]
  - COUGH [None]
  - DYSPHAGIA [None]
  - DYSPNOEA [None]
  - GAIT DISTURBANCE [None]
